FAERS Safety Report 6807820-4 (Version None)
Quarter: 2010Q2

REPORT INFORMATION
  Report Type: 
  Country: None (occurrence: None)
  Receive Date: 20100629
  Receipt Date: 20090221
  Transmission Date: 20101027
  Serious: No
  Sender: FDA-Public Use
  Company Number: US-PFIZER INC-2009155715

PATIENT
  Age: 61 Year
  Sex: Female
  Weight: 108.39 kg

DRUGS (3)
  1. ZYVOX [Suspect]
     Dosage: 600 MG, 2X/DAY
     Route: 042
     Dates: start: 20081222, end: 20081225
  2. NEO-SYNEPHRINOL [Concomitant]
     Route: 042
  3. VERSED [Concomitant]
     Route: 042

REACTIONS (2)
  - INJECTION SITE EXTRAVASATION [None]
  - INJECTION SITE INJURY [None]
